FAERS Safety Report 5593083-7 (Version None)
Quarter: 2008Q1

REPORT INFORMATION
  Report Type: 
  Country: None (occurrence: None)
  Receive Date: 20080116
  Receipt Date: 20080109
  Transmission Date: 20080703
  Serious: Yes (Other)
  Sender: FDA-Public Use
  Company Number: PHNU2007DE01769

PATIENT
  Sex: Female

DRUGS (2)
  1. LEPONEX [Suspect]
     Indication: PSYCHOTIC DISORDER
     Dosage: 150 MG TO 600 MG/DAY
     Route: 048
     Dates: start: 19950101, end: 20010101
  2. SOLIAN [Concomitant]
     Dates: start: 20010101

REACTIONS (4)
  - DRUG WITHDRAWAL SYNDROME [None]
  - HYPERHIDROSIS [None]
  - PAIN [None]
  - PHOTOSENSITIVITY REACTION [None]
